FAERS Safety Report 8164096-6 (Version None)
Quarter: 2012Q1

REPORT INFORMATION
  Report Type: 
  Country: None (occurrence: None)
  Receive Date: 20120221
  Receipt Date: 20120206
  Transmission Date: 20120608
  Serious: Yes (Hospitalization)
  Sender: FDA-Public Use
  Company Number: 1000028406

PATIENT

DRUGS (5)
  1. LEXAPRO [Suspect]
     Indication: DEPRESSION
     Dosage: 20 MG (10 MG,2 IN 1 D),ORAL
     Route: 048
     Dates: start: 20111130, end: 20120124
  2. ENSURE LIQUID (ENSURE)(LIQUID)(ENSURE) [Concomitant]
  3. RISPERDAL [Suspect]
     Dosage: ORAL
     Route: 048
  4. GASMOTIN (MOSAPRIDE CITRATE) (MOSAPRIDE CITRATE) [Concomitant]
  5. LEXAPRO [Suspect]
     Indication: DEPRESSION
     Dosage: 10 MG (10 MG,2 IN 1 D),ORAL
     Route: 048
     Dates: start: 20120125, end: 20120201

REACTIONS (2)
  - ALANINE AMINOTRANSFERASE INCREASED [None]
  - LIVER DISORDER [None]
